FAERS Safety Report 12208383 (Version 1)
Quarter: 2016Q1

REPORT INFORMATION
  Report Type: Spontaneous
  Country: SE (occurrence: SE)
  Receive Date: 20160324
  Receipt Date: 20160324
  Transmission Date: 20160526
  Serious: Yes (Other)
  Sender: FDA-Public Use
  Company Number: SE-SA-2016SA057006

PATIENT
  Age: 75 Year
  Sex: Female

DRUGS (6)
  1. DIVISUN [Concomitant]
  2. WARAN [Concomitant]
     Active Substance: WARFARIN SODIUM
  3. MULTAQ [Suspect]
     Active Substance: DRONEDARONE
     Indication: ATRIAL FIBRILLATION
     Route: 065
     Dates: start: 201502, end: 20151028
  4. PANTOPRAZOLE [Concomitant]
     Active Substance: PANTOPRAZOLE SODIUM
  5. LOSARTAN. [Concomitant]
     Active Substance: LOSARTAN
  6. ALPRAZOLAM. [Concomitant]
     Active Substance: ALPRAZOLAM

REACTIONS (5)
  - Red blood cell sedimentation rate increased [Recovered/Resolved]
  - Alveolitis [Recovered/Resolved]
  - Computerised tomogram thorax abnormal [Recovered/Resolved]
  - C-reactive protein increased [Recovered/Resolved]
  - Pyrexia [Recovered/Resolved]

NARRATIVE: CASE EVENT DATE: 201504
